FAERS Safety Report 13409304 (Version 3)
Quarter: 2018Q1

REPORT INFORMATION
  Report Type: Spontaneous
  Country: US (occurrence: US)
  Receive Date: 20170406
  Receipt Date: 20180118
  Transmission Date: 20180508
  Serious: No
  Sender: FDA-Public Use
  Company Number: US-JNJFOC-20170124020

PATIENT
  Age: 13 Year
  Sex: Male

DRUGS (51)
  1. RISPERIDONE. [Suspect]
     Active Substance: RISPERIDONE
     Indication: AUTISM SPECTRUM DISORDER
     Route: 048
     Dates: start: 20090613, end: 20090826
  2. RISPERIDONE. [Suspect]
     Active Substance: RISPERIDONE
     Indication: AUTISM SPECTRUM DISORDER
     Route: 048
     Dates: start: 20070702
  3. RISPERIDONE. [Suspect]
     Active Substance: RISPERIDONE
     Indication: ATTENTION DEFICIT/HYPERACTIVITY DISORDER
     Route: 048
     Dates: start: 20090613, end: 20090826
  4. RISPERDAL [Suspect]
     Active Substance: RISPERIDONE
     Indication: AUTISM SPECTRUM DISORDER
     Route: 048
     Dates: start: 20080623
  5. RISPERDAL [Suspect]
     Active Substance: RISPERIDONE
     Indication: ATTENTION DEFICIT/HYPERACTIVITY DISORDER
     Route: 048
     Dates: start: 20091008
  6. RISPERIDONE. [Suspect]
     Active Substance: RISPERIDONE
     Indication: AUTISM SPECTRUM DISORDER
     Route: 048
     Dates: start: 20070702
  7. RISPERIDONE. [Suspect]
     Active Substance: RISPERIDONE
     Indication: ATTENTION DEFICIT/HYPERACTIVITY DISORDER
     Route: 048
     Dates: start: 20070702
  8. RISPERDAL [Suspect]
     Active Substance: RISPERIDONE
     Indication: AUTISM SPECTRUM DISORDER
     Dosage: VARYING FREQUENCIES OF UNSPECIFIED FREQUENCY AND TWICE DAILY.
     Route: 048
     Dates: start: 20090323, end: 20090421
  9. RISPERDAL [Suspect]
     Active Substance: RISPERIDONE
     Indication: AUTISM SPECTRUM DISORDER
     Route: 048
     Dates: start: 20091008
  10. RISPERDAL [Suspect]
     Active Substance: RISPERIDONE
     Indication: ATTENTION DEFICIT/HYPERACTIVITY DISORDER
     Route: 048
     Dates: start: 20080623
  11. RISPERIDONE. [Suspect]
     Active Substance: RISPERIDONE
     Indication: BIPOLAR DISORDER
     Route: 048
     Dates: start: 20070702
  12. RISPERIDONE. [Suspect]
     Active Substance: RISPERIDONE
     Indication: BIPOLAR DISORDER
     Route: 048
     Dates: start: 20090613, end: 20090826
  13. RISPERIDONE. [Suspect]
     Active Substance: RISPERIDONE
     Indication: AUTISM SPECTRUM DISORDER
     Route: 048
     Dates: end: 20150417
  14. RISPERIDONE. [Suspect]
     Active Substance: RISPERIDONE
     Indication: ATTENTION DEFICIT/HYPERACTIVITY DISORDER
     Route: 048
     Dates: end: 20140905
  15. RISPERDAL [Suspect]
     Active Substance: RISPERIDONE
     Indication: BIPOLAR DISORDER
     Dosage: VARYING FREQUENCIES OF UNSPECIFIED FREQUENCY AND TWICE DAILY.
     Route: 048
     Dates: start: 20090323, end: 20090421
  16. RISPERDAL [Suspect]
     Active Substance: RISPERIDONE
     Indication: BIPOLAR DISORDER
     Route: 048
     Dates: start: 20070702
  17. RISPERDAL [Suspect]
     Active Substance: RISPERIDONE
     Indication: AUTISM SPECTRUM DISORDER
     Route: 048
     Dates: start: 20070702
  18. RISPERIDONE. [Suspect]
     Active Substance: RISPERIDONE
     Indication: AUTISM SPECTRUM DISORDER
     Dosage: VARYING DOSES OF 01 MG AND 02 MG.
     Route: 048
     Dates: start: 20091030, end: 20140227
  19. RISPERDAL [Suspect]
     Active Substance: RISPERIDONE
     Indication: KLIPPEL-FEIL SYNDROME
     Route: 048
     Dates: start: 20070702
  20. RISPERDAL [Suspect]
     Active Substance: RISPERIDONE
     Indication: KLIPPEL-FEIL SYNDROME
     Route: 048
     Dates: start: 20080623
  21. RISPERDAL [Suspect]
     Active Substance: RISPERIDONE
     Indication: AUTISM SPECTRUM DISORDER
     Dosage: VARYING FREQUENCIES INCLUDED TWICE DAILY AND THRICE DAILY
     Route: 048
     Dates: start: 20140325, end: 20140905
  22. RISPERIDONE. [Suspect]
     Active Substance: RISPERIDONE
     Indication: KLIPPEL-FEIL SYNDROME
     Route: 048
     Dates: start: 20090613, end: 20090826
  23. RISPERIDONE. [Suspect]
     Active Substance: RISPERIDONE
     Indication: KLIPPEL-FEIL SYNDROME
     Dosage: VARYING DOSES OF 01 MG AND 02 MG.
     Route: 048
     Dates: start: 20091030, end: 20140227
  24. RISPERIDONE. [Suspect]
     Active Substance: RISPERIDONE
     Indication: BIPOLAR DISORDER
     Route: 048
     Dates: end: 20150417
  25. RISPERIDONE. [Suspect]
     Active Substance: RISPERIDONE
     Indication: AUTISM SPECTRUM DISORDER
     Dosage: VARYING DOSES OF 01 MG AND 02 MG.
     Route: 048
     Dates: start: 20091030, end: 20140227
  26. RISPERIDONE. [Suspect]
     Active Substance: RISPERIDONE
     Indication: AUTISM SPECTRUM DISORDER
     Route: 048
     Dates: end: 20140905
  27. RISPERDAL [Suspect]
     Active Substance: RISPERIDONE
     Indication: BIPOLAR DISORDER
     Route: 048
     Dates: start: 20091008
  28. RISPERDAL [Suspect]
     Active Substance: RISPERIDONE
     Indication: AUTISM SPECTRUM DISORDER
     Route: 048
     Dates: start: 20080623
  29. RISPERDAL [Suspect]
     Active Substance: RISPERIDONE
     Indication: ATTENTION DEFICIT/HYPERACTIVITY DISORDER
     Dosage: VARYING FREQUENCIES OF UNSPECIFIED FREQUENCY AND TWICE DAILY.
     Route: 048
     Dates: start: 20090323, end: 20090421
  30. RISPERIDONE. [Suspect]
     Active Substance: RISPERIDONE
     Indication: BIPOLAR DISORDER
     Dosage: VARYING DOSES OF 01 MG AND 02 MG.
     Route: 048
     Dates: start: 20091030, end: 20140227
  31. RISPERIDONE. [Suspect]
     Active Substance: RISPERIDONE
     Indication: PRODUCT USED FOR UNKNOWN INDICATION
     Route: 048
  32. RISPERDAL [Suspect]
     Active Substance: RISPERIDONE
     Indication: BIPOLAR DISORDER
     Route: 048
     Dates: start: 20080623
  33. RISPERDAL [Suspect]
     Active Substance: RISPERIDONE
     Indication: AUTISM SPECTRUM DISORDER
     Route: 048
     Dates: start: 20091008
  34. RISPERDAL [Suspect]
     Active Substance: RISPERIDONE
     Indication: AUTISM SPECTRUM DISORDER
     Route: 048
     Dates: start: 20070702
  35. RISPERDAL [Suspect]
     Active Substance: RISPERIDONE
     Indication: AUTISM SPECTRUM DISORDER
     Dosage: VARYING FREQUENCIES OF UNSPECIFIED FREQUENCY AND TWICE DAILY.
     Route: 048
     Dates: start: 20090323, end: 20090421
  36. RISPERDAL [Suspect]
     Active Substance: RISPERIDONE
     Indication: AUTISM SPECTRUM DISORDER
     Dosage: VARYING FREQUENCIES INCLUDED TWICE DAILY AND THRICE DAILY
     Route: 048
     Dates: start: 20140325, end: 20140905
  37. RISPERDAL [Suspect]
     Active Substance: RISPERIDONE
     Indication: ATTENTION DEFICIT/HYPERACTIVITY DISORDER
     Dosage: VARYING FREQUENCIES INCLUDED TWICE DAILY AND THRICE DAILY
     Route: 048
     Dates: start: 20140325, end: 20140905
  38. RISPERIDONE. [Suspect]
     Active Substance: RISPERIDONE
     Indication: AUTISM SPECTRUM DISORDER
     Route: 048
     Dates: start: 20090613, end: 20090826
  39. RISPERIDONE. [Suspect]
     Active Substance: RISPERIDONE
     Indication: AUTISM SPECTRUM DISORDER
     Route: 048
     Dates: end: 20150417
  40. RISPERDAL [Suspect]
     Active Substance: RISPERIDONE
     Indication: KLIPPEL-FEIL SYNDROME
     Dosage: VARYING FREQUENCIES OF UNSPECIFIED FREQUENCY AND TWICE DAILY.
     Route: 048
     Dates: start: 20090323, end: 20090421
  41. RISPERDAL [Suspect]
     Active Substance: RISPERIDONE
     Indication: BIPOLAR DISORDER
     Dosage: VARYING FREQUENCIES INCLUDED TWICE DAILY AND THRICE DAILY
     Route: 048
     Dates: start: 20140325, end: 20140905
  42. RISPERIDONE. [Suspect]
     Active Substance: RISPERIDONE
     Indication: KLIPPEL-FEIL SYNDROME
     Route: 048
     Dates: start: 20070702
  43. RISPERIDONE. [Suspect]
     Active Substance: RISPERIDONE
     Indication: AUTISM SPECTRUM DISORDER
     Route: 048
     Dates: end: 20140905
  44. RISPERIDONE. [Suspect]
     Active Substance: RISPERIDONE
     Indication: ATTENTION DEFICIT/HYPERACTIVITY DISORDER
     Dosage: VARYING DOSES OF 01 MG AND 02 MG.
     Route: 048
     Dates: start: 20091030, end: 20140227
  45. RISPERIDONE. [Suspect]
     Active Substance: RISPERIDONE
     Indication: ATTENTION DEFICIT/HYPERACTIVITY DISORDER
     Route: 048
     Dates: end: 20150417
  46. RISPERDAL [Suspect]
     Active Substance: RISPERIDONE
     Indication: KLIPPEL-FEIL SYNDROME
     Dosage: VARYING FREQUENCIES INCLUDED TWICE DAILY AND THRICE DAILY
     Route: 048
     Dates: start: 20140325, end: 20140905
  47. RISPERDAL [Suspect]
     Active Substance: RISPERIDONE
     Indication: KLIPPEL-FEIL SYNDROME
     Route: 048
     Dates: start: 20091008
  48. RISPERDAL [Suspect]
     Active Substance: RISPERIDONE
     Indication: ATTENTION DEFICIT/HYPERACTIVITY DISORDER
     Route: 048
     Dates: start: 20070702
  49. RISPERIDONE. [Suspect]
     Active Substance: RISPERIDONE
     Indication: KLIPPEL-FEIL SYNDROME
     Route: 048
     Dates: end: 20150417
  50. RISPERIDONE. [Suspect]
     Active Substance: RISPERIDONE
     Indication: KLIPPEL-FEIL SYNDROME
     Route: 048
     Dates: end: 20140905
  51. RISPERIDONE. [Suspect]
     Active Substance: RISPERIDONE
     Indication: BIPOLAR DISORDER
     Route: 048
     Dates: end: 20140905

REACTIONS (3)
  - Gynaecomastia [Unknown]
  - Emotional distress [Unknown]
  - Weight increased [Unknown]

NARRATIVE: CASE EVENT DATE: 20130524
